FAERS Safety Report 8140363-7 (Version None)
Quarter: 2012Q1

REPORT INFORMATION
  Report Type: 
  Country: None (occurrence: None)
  Receive Date: 20120216
  Receipt Date: 20120213
  Transmission Date: 20120608
  Serious: No
  Sender: FDA-Public Use
  Company Number: US-PFIZER INC-2012038984

PATIENT
  Sex: Female
  Weight: 72.6 kg

DRUGS (6)
  1. CELEBREX [Suspect]
     Indication: ARTHRITIS
     Dosage: 200 MG, 1X/DAY
     Route: 048
     Dates: start: 20010101
  2. CITALOPRAM [Concomitant]
     Dosage: 20 MG, UNK
  3. CELEBREX [Suspect]
     Dosage: 200 MG, 2X/DAY
     Route: 048
     Dates: end: 20070101
  4. LEVOTHYROXINE [Concomitant]
     Dosage: UNK
  5. CELEBREX [Suspect]
     Dosage: 200 MG, 2X/DAY
     Route: 048
  6. LISINOPRIL AND HYDROCHLOROTHIAZIDE [Concomitant]
     Dosage: 12.5/20 MG, 1X/DAY

REACTIONS (2)
  - DIARRHOEA [None]
  - MALAISE [None]
